FAERS Safety Report 10691043 (Version 4)
Quarter: 2015Q1

REPORT INFORMATION
  Report Type: Spontaneous
  Country: US (occurrence: US)
  Receive Date: 20150105
  Receipt Date: 20150325
  Transmission Date: 20150720
  Serious: No
  Sender: FDA-Public Use
  Company Number: US-009507513-1412USA013631

PATIENT
  Sex: Male
  Weight: 76.19 kg

DRUGS (1)
  1. CLARITIN REDITABS [Suspect]
     Active Substance: LORATADINE
     Indication: SNEEZING
     Dosage: 5 MG, UNKNOWN
     Route: 048
     Dates: start: 201309, end: 20141215

REACTIONS (11)
  - Dyspnoea [Unknown]
  - Malaise [Unknown]
  - Chest pain [Unknown]
  - Pulmonary pain [Unknown]
  - Oropharyngeal pain [Unknown]
  - Nasal congestion [Recovered/Resolved]
  - Productive cough [Recovered/Resolved]
  - Oropharyngeal discomfort [Recovered/Resolved]
  - Insomnia [Unknown]
  - Throat irritation [Unknown]
  - Unevaluable event [Unknown]

NARRATIVE: CASE EVENT DATE: 2014
